FAERS Safety Report 5024763-X (Version None)
Quarter: 2006Q2

REPORT INFORMATION
  Report Type: 
  Country: None (occurrence: None)
  Receive Date: 20060613
  Receipt Date: 20060530
  Transmission Date: 20061013
  Serious: Yes (Hospitalization)
  Sender: FDA-Public Use
  Company Number: US-KINGPHARMUSA00001-K200600727

PATIENT
  Age: 8 Year
  Sex: Female
  Weight: 24 kg

DRUGS (6)
  1. APLISOL [Suspect]
     Indication: TUBERCULIN TEST
     Dosage: UNK, SINGLE
     Dates: start: 20051025, end: 20051025
  2. ZYRTEC [Concomitant]
     Dosage: UNK, QD
  3. PULMICORT [Concomitant]
  4. SINGULAIR [Concomitant]
     Dosage: 1 TAB, QD
  5. XOPENEX [Concomitant]
     Indication: DYSPNOEA
     Dosage: .3 UNK, PRN
  6. ADDERALL XR 10 [Concomitant]

REACTIONS (45)
  - ABDOMINAL DISTENSION [None]
  - ABDOMINAL PAIN [None]
  - ABDOMINAL PAIN UPPER [None]
  - ANOREXIA [None]
  - AORTIC DISORDER [None]
  - ARTHRALGIA [None]
  - ARTHRITIS [None]
  - ASTHENIA [None]
  - BILIARY DYSKINESIA [None]
  - BLISTER [None]
  - BLOOD PRESSURE DECREASED [None]
  - BRONCHITIS [None]
  - CARDIAC DISORDER [None]
  - CHEST PAIN [None]
  - CHEST X-RAY ABNORMAL [None]
  - CHILLS [None]
  - CONFUSIONAL STATE [None]
  - CROUP INFECTIOUS [None]
  - DIARRHOEA [None]
  - DIZZINESS [None]
  - DYSPHONIA [None]
  - DYSPNOEA [None]
  - DYSPNOEA EXERTIONAL [None]
  - ELECTROCARDIOGRAM ABNORMAL [None]
  - EYE PAIN [None]
  - FALL [None]
  - GALLBLADDER DISORDER [None]
  - HEART RATE INCREASED [None]
  - HYPOAESTHESIA [None]
  - LUNG HYPERINFLATION [None]
  - MYALGIA [None]
  - PAIN IN EXTREMITY [None]
  - PARAESTHESIA [None]
  - PHARYNGITIS STREPTOCOCCAL [None]
  - PHOTOPHOBIA [None]
  - PITUITARY CYST [None]
  - PYREXIA [None]
  - RASH [None]
  - SCAR [None]
  - SCARLET FEVER [None]
  - SCOLIOSIS [None]
  - SKIN DISCOLOURATION [None]
  - VISUAL FIELD TESTS ABNORMAL [None]
  - VOMITING [None]
  - WEIGHT DECREASED [None]
